FAERS Safety Report 22250374 (Version 2)
Quarter: 2023Q2

REPORT INFORMATION
  Report Type: Spontaneous
  Country: US (occurrence: US)
  Receive Date: 20230425
  Receipt Date: 20230623
  Transmission Date: 20230721
  Serious: No
  Sender: FDA-Public Use
  Company Number: US-GILEAD-2023-0625482

PATIENT
  Age: 64 Year
  Sex: Male

DRUGS (2)
  1. LENACAPAVIR [Suspect]
     Active Substance: LENACAPAVIR
     Indication: HIV infection
     Dosage: 927MG SUBCUTANEOUSLY EVERY 6 MONTHS
     Route: 065
     Dates: start: 202303
  2. TROGARZO [Suspect]
     Active Substance: IBALIZUMAB-UIYK
     Indication: HIV infection
     Dosage: 800 MG, Q2WK
     Route: 042
     Dates: start: 202103

REACTIONS (3)
  - Diarrhoea [Not Recovered/Not Resolved]
  - Bradyphrenia [Not Recovered/Not Resolved]
  - Fatigue [Not Recovered/Not Resolved]
